FAERS Safety Report 19812359 (Version 1)
Quarter: 2021Q3

REPORT INFORMATION
  Report Type: Spontaneous
  Country: FR (occurrence: FR)
  Receive Date: 20210910
  Receipt Date: 20210910
  Transmission Date: 20211014
  Serious: Yes (Hospitalization)
  Sender: FDA-Public Use
  Company Number: FR-ACCORD-237967

PATIENT
  Age: 49 Year
  Sex: Female
  Weight: 54 kg

DRUGS (2)
  1. MITOMYCIN. [Suspect]
     Active Substance: MITOMYCIN
     Indication: ANAL CANCER
     Route: 051
     Dates: start: 202002
  2. FLUOROURACIL/FLUOROURACIL SODIUM [Concomitant]
     Active Substance: FLUOROURACIL SODIUM

REACTIONS (2)
  - Pulmonary veno-occlusive disease [Not Recovered/Not Resolved]
  - Off label use [Unknown]

NARRATIVE: CASE EVENT DATE: 20210721
